FAERS Safety Report 9862134 (Version 1)
Quarter: 2014Q1

REPORT INFORMATION
  Report Type: Spontaneous
  Country: US (occurrence: US)
  Receive Date: 20140203
  Receipt Date: 20140203
  Transmission Date: 20141002
  Serious: No
  Sender: FDA-Public Use
  Company Number: US-B.I. PHARMACEUTICALS,INC./RIDGEFIELD-2014-BI-03283BP

PATIENT
  Age: 59 Year
  Sex: Female

DRUGS (2)
  1. MICARDIS HCT [Suspect]
     Indication: HYPERTENSION
     Dosage: DOSE PER APPLICATION: 80 MG / 25 MG; DAILY DOSE: 80 MG/ 25 MG
     Route: 048
     Dates: start: 201309, end: 201312
  2. METFORMIN [Concomitant]
     Indication: DIABETES MELLITUS
     Route: 048

REACTIONS (1)
  - Hypersomnia [Recovered/Resolved]
